FAERS Safety Report 20534438 (Version 9)
Quarter: 2023Q2

REPORT INFORMATION
  Report Type: Spontaneous
  Country: US (occurrence: US)
  Receive Date: 20220302
  Receipt Date: 20230626
  Transmission Date: 20230721
  Serious: Yes (Hospitalization, Disabling, Other)
  Sender: FDA-Public Use
  Company Number: US-ORGANON-O2202USA002282

PATIENT
  Sex: Male

DRUGS (1)
  1. SINGULAIR [Suspect]
     Active Substance: MONTELUKAST SODIUM
     Indication: Asthma
     Dosage: UNK
     Route: 048
     Dates: start: 1998, end: 2020

REACTIONS (17)
  - Neuropsychiatric symptoms [Not Recovered/Not Resolved]
  - Post-traumatic stress disorder [Not Recovered/Not Resolved]
  - Schizoaffective disorder depressive type [Not Recovered/Not Resolved]
  - Impulsive behaviour [Not Recovered/Not Resolved]
  - Mental disorder [Unknown]
  - Suicide attempt [Unknown]
  - Anxiety [Recovering/Resolving]
  - Depression [Not Recovered/Not Resolved]
  - Suicidal ideation [Recovered/Resolved]
  - Bipolar disorder [Recovered/Resolved]
  - Bipolar I disorder [Recovered/Resolved]
  - Suicide attempt [Unknown]
  - Hallucinations, mixed [Recovering/Resolving]
  - Seizure [Unknown]
  - Disturbance in attention [Not Recovered/Not Resolved]
  - Paranoia [Recovering/Resolving]
  - Adjustment disorder with mixed disturbance of emotion and conduct [Recovered/Resolved]

NARRATIVE: CASE EVENT DATE: 19980101
